FAERS Safety Report 11744499 (Version 1)
Quarter: 2015Q4

REPORT INFORMATION
  Report Type: Spontaneous
  Country: DE (occurrence: DE)
  Receive Date: 20151116
  Receipt Date: 20151116
  Transmission Date: 20160304
  Serious: Yes (Other)
  Sender: FDA-Public Use
  Company Number: DE-BAXTER-2015BAX060323

PATIENT
  Age: 74 Year
  Sex: Female

DRUGS (1)
  1. SUPRANE [Suspect]
     Active Substance: DESFLURANE
     Indication: OSTEOSYNTHESIS
     Route: 055
     Dates: start: 20151104

REACTIONS (4)
  - Pulmonary function test abnormal [Recovering/Resolving]
  - Hyperhidrosis [Recovering/Resolving]
  - Carbon dioxide increased [Recovering/Resolving]
  - Tachycardia [Recovering/Resolving]

NARRATIVE: CASE EVENT DATE: 20151104
